FAERS Safety Report 10674203 (Version 1)
Quarter: 2014Q4

REPORT INFORMATION
  Report Type: Spontaneous
  Country: US (occurrence: None)
  Receive Date: 20141223
  Receipt Date: 20141223
  Transmission Date: 20150529
  Serious: Yes (Other)
  Sender: FDA-Public Use
  Company Number: None

PATIENT
  Age: 54 Year
  Sex: Male

DRUGS (3)
  1. LEVAQUIN [Concomitant]
     Active Substance: LEVOFLOXACIN
  2. MULTI VITAMINS [Concomitant]
  3. HUMIRA [Suspect]
     Active Substance: ADALIMUMAB
     Indication: CROHN^S DISEASE
     Dosage: 40 MG/0.8 ML ?1 PEN INJECTER?40MG Q OTHER WEEK?SQ INJECTION
     Dates: start: 20141007, end: 20141208

REACTIONS (4)
  - Injection site pain [None]
  - Injection site erythema [None]
  - Injection site inflammation [None]
  - Injection site vesicles [None]

NARRATIVE: CASE EVENT DATE: 20141208
